FAERS Safety Report 25584015 (Version 2)
Quarter: 2025Q3

REPORT INFORMATION
  Report Type: Spontaneous
  Country: JP (occurrence: JP)
  Receive Date: 20250721
  Receipt Date: 20250822
  Transmission Date: 20251020
  Serious: Yes (Other)
  Sender: ALEXION PHARMACEUTICALS
  Company Number: JP-AstraZeneca-CH-00909659A

PATIENT
  Age: 66 Year
  Sex: Female

DRUGS (1)
  1. LYNPARZA [Suspect]
     Active Substance: OLAPARIB
     Indication: Ovarian cancer
     Dosage: 200 MILLIGRAM, BID
     Dates: start: 20250624, end: 20250701

REACTIONS (2)
  - Renal impairment [Unknown]
  - Anaemia [Unknown]

NARRATIVE: CASE EVENT DATE: 20250701
